FAERS Safety Report 25529793 (Version 1)
Quarter: 2025Q3

REPORT INFORMATION
  Report Type: Spontaneous
  Country: AU (occurrence: AU)
  Receive Date: 20250708
  Receipt Date: 20250708
  Transmission Date: 20251021
  Serious: Yes (Hospitalization)
  Sender: JOURNEY MEDICAL CORPORATION
  Company Number: AU-JOURNEY MEDICAL CORPORATION-2025JNY00114

PATIENT
  Age: 4 Decade
  Sex: Female

DRUGS (3)
  1. GLYCOPYRROLATE [Suspect]
     Active Substance: GLYCOPYRROLATE
     Indication: Bradycardia
  2. METARAMINOL [Concomitant]
     Active Substance: METARAMINOL
     Route: 042
  3. INTRAVENOUS FLUID [Concomitant]
     Route: 042

REACTIONS (1)
  - Stress cardiomyopathy [Recovered/Resolved]
